FAERS Safety Report 5452420-4 (Version None)
Quarter: 2007Q3

REPORT INFORMATION
  Report Type: 
  Country: None (occurrence: None)
  Receive Date: 20070914
  Receipt Date: 20070830
  Transmission Date: 20080115
  Serious: Yes (Other)
  Sender: FDA-Public Use
  Company Number: JP-ELI_LILLY_AND_COMPANY-JP200707005479

PATIENT
  Age: 59 Year
  Sex: Male
  Weight: 55.2 kg

DRUGS (20)
  1. PEMETREXED [Suspect]
     Indication: PLEURAL MESOTHELIOMA MALIGNANT
     Dosage: 500 MG/M2, OTHER
     Route: 042
     Dates: start: 20070712, end: 20070712
  2. PEMETREXED [Suspect]
     Dosage: 250 MG/M2, OTHER
     Route: 042
     Dates: start: 20070813
  3. CISPLATIN [Suspect]
     Indication: PLEURAL MESOTHELIOMA MALIGNANT
     Dosage: 75 MG/M2, OTHER
     Route: 042
     Dates: start: 20070712
  4. PANVITAN [Concomitant]
     Dosage: 0.5 MG, DAILY (1/D)
     Route: 048
     Dates: start: 20070628
  5. METHYCOBAL [Concomitant]
     Dosage: 1 MG, DAILY (1/D)
     Route: 030
     Dates: start: 20070628
  6. GASTER D /JPN/ [Concomitant]
     Indication: PROPHYLAXIS
     Dosage: 20 MG, DAILY (1/D)
     Route: 048
  7. AMOBAN [Concomitant]
     Indication: PROPHYLAXIS
     Dosage: 10 MG, DAILY (1/D)
     Route: 048
  8. TERNELIN [Concomitant]
     Indication: CANCER PAIN
     Dosage: 6 MG, DAILY (1/D)
     Route: 048
     Dates: end: 20070712
  9. PREDONINE [Concomitant]
     Indication: CANCER PAIN
     Dosage: 10 MG, DAILY (1/D)
     Route: 048
  10. TEGRETOL [Concomitant]
     Indication: CANCER PAIN
     Dosage: 400 MG, DAILY (1/D)
     Route: 048
     Dates: end: 20070719
  11. MEXITIL [Concomitant]
     Indication: CANCER PAIN
     Dosage: 300 MG, DAILY (1/D)
     Route: 048
     Dates: end: 20070719
  12. MORPHINE HCL ELIXIR [Concomitant]
     Indication: CANCER PAIN
     Dosage: 240 MG, DAILY (1/D)
     Route: 048
     Dates: end: 20070712
  13. BIO THREE [Concomitant]
     Indication: PROPHYLAXIS
     Dosage: 3 D/F, DAILY (1/D)
     Route: 048
  14. MS CONTIN [Concomitant]
     Indication: CANCER PAIN
     Dosage: 240 MG, DAILY (1/D)
     Route: 048
  15. MAGLAX [Concomitant]
     Indication: PROPHYLAXIS
     Dosage: 1980 MG, DAILY (1/D)
     Route: 048
  16. NOVAMIN [Concomitant]
     Indication: PROPHYLAXIS
     Dosage: 15 MG, DAILY (1/D)
     Route: 048
  17. DECADRON /00016002/ [Concomitant]
     Indication: PROPHYLAXIS
     Dosage: 8 MG, DAILY (1/D)
     Route: 042
     Dates: start: 20070712, end: 20070715
  18. KYTRIL /01178102/ [Concomitant]
     Indication: PROPHYLAXIS
     Dosage: 3 MG, DAILY (1/D)
     Route: 042
     Dates: start: 20070712, end: 20070712
  19. MANNITOL [Concomitant]
     Indication: PROPHYLAXIS
     Dosage: 300 ML, DAILY (1/D)
     Route: 042
     Dates: start: 20070712, end: 20070712
  20. LASIX [Concomitant]
     Indication: PROPHYLAXIS
     Dosage: 20 MG, DAILY (1/D)
     Route: 042
     Dates: start: 20070712, end: 20070712

REACTIONS (7)
  - ATRIAL FIBRILLATION [None]
  - CARDIAC FAILURE [None]
  - FEBRILE NEUTROPENIA [None]
  - HYPOTENSION [None]
  - OXYGEN SATURATION DECREASED [None]
  - PLATELET COUNT DECREASED [None]
  - WHITE BLOOD CELL COUNT DECREASED [None]
